FAERS Safety Report 22521200 (Version 1)
Quarter: 2023Q2

REPORT INFORMATION
  Report Type: Spontaneous
  Country: DE (occurrence: None)
  Receive Date: 20230605
  Receipt Date: 20230605
  Transmission Date: 20230722
  Serious: Yes (Hospitalization, Other)
  Sender: FDA-Public Use
  Company Number: 2023A119387

PATIENT
  Sex: Male

DRUGS (1)
  1. OMEPRAZOLE [Suspect]
     Active Substance: OMEPRAZOLE

REACTIONS (5)
  - Acute abdomen [Unknown]
  - Ileal perforation [Unknown]
  - Product package associated injury [Unknown]
  - Accidental exposure to product packaging [Unknown]
  - Product administration error [Unknown]
